FAERS Safety Report 22240012 (Version 1)
Quarter: 2023Q2

REPORT INFORMATION
  Report Type: Spontaneous
  Country: US (occurrence: None)
  Receive Date: 20230419
  Receipt Date: 20230419
  Transmission Date: 20230722
  Serious: No
  Sender: FDA-Public Use
  Company Number: None

PATIENT
  Age: 37 Year
  Sex: Female

DRUGS (2)
  1. SILDENAFIL CITRATE [Suspect]
     Active Substance: SILDENAFIL CITRATE
     Indication: Pulmonary arterial hypertension
     Dosage: FREQUENCY : 3 TIMES A DAY;?
     Route: 048
     Dates: start: 202205
  2. TREPROSTINIL [Suspect]
     Active Substance: TREPROSTINIL

REACTIONS (8)
  - Product use issue [None]
  - Therapy interrupted [None]
  - Headache [None]
  - Dizziness [None]
  - Back pain [None]
  - Infusion site irritation [None]
  - Vascular access site complication [None]
  - Pain [None]

NARRATIVE: CASE EVENT DATE: 20230418
